FAERS Safety Report 6838282-9 (Version None)
Quarter: 2010Q3

REPORT INFORMATION
  Report Type: 
  Country: None (occurrence: None)
  Receive Date: 20100709
  Receipt Date: 20100616
  Transmission Date: 20110219
  Serious: Yes (Hospitalization, Other)
  Sender: FDA-Public Use
  Company Number: GB-ACCORD-005389

PATIENT
  Age: 60 Year
  Sex: Male

DRUGS (5)
  1. SIMVASTATIN [Suspect]
  2. ATORVASTATIN CALCIUM [Suspect]
  3. ASPIRIN [Concomitant]
  4. GLICLAZIDE [Concomitant]
  5. RAMIPRIL [Concomitant]

REACTIONS (13)
  - DIABETES MELLITUS [None]
  - DIPLOPIA [None]
  - DYSARTHRIA [None]
  - DYSPHAGIA [None]
  - DYSSTASIA [None]
  - EYELID PTOSIS [None]
  - FATIGUE [None]
  - GENERAL PHYSICAL HEALTH DETERIORATION [None]
  - HYPERLIPIDAEMIA [None]
  - MYASTHENIA GRAVIS [None]
  - SEPSIS [None]
  - UNRESPONSIVE TO STIMULI [None]
  - VISUAL IMPAIRMENT [None]
